FAERS Safety Report 15040929 (Version 1)
Quarter: 2018Q2

REPORT INFORMATION
  Report Type: Spontaneous
  Country: US (occurrence: US)
  Receive Date: 20180620
  Receipt Date: 20180620
  Transmission Date: 20180711
  Serious: No
  Sender: FDA-Public Use
  Company Number: US-ASTRAZENECA-2018SE68998

PATIENT
  Age: 26277 Day
  Sex: Female
  Weight: 57.2 kg

DRUGS (2)
  1. ALBUTEROL. [Concomitant]
     Active Substance: ALBUTEROL
     Indication: INHALATION THERAPY
     Dosage: AS REQUIRED
     Route: 055
  2. TUDORZA PRESSAIR [Suspect]
     Active Substance: ACLIDINIUM BROMIDE
     Indication: CHRONIC OBSTRUCTIVE PULMONARY DISEASE
     Dosage: 400 MCG 1 PUFF TWICE A DAY
     Route: 055

REACTIONS (5)
  - Feeling jittery [Not Recovered/Not Resolved]
  - Dry mouth [Unknown]
  - Dry eye [Unknown]
  - Device malfunction [Unknown]
  - Toothache [Unknown]

NARRATIVE: CASE EVENT DATE: 20180522
